FAERS Safety Report 4293692-1 (Version None)
Quarter: 2004Q1

REPORT INFORMATION
  Report Type: 
  Country: None (occurrence: None)
  Receive Date: 20040210
  Receipt Date: 20040127
  Transmission Date: 20041129
  Serious: Yes (Other)
  Sender: FDA-Public Use
  Company Number: BE-JNJFOC-20040103329

PATIENT
  Age: 80 Year
  Sex: Male

DRUGS (1)
  1. PROPULSID [Suspect]
     Indication: IMPAIRED GASTRIC EMPTYING
     Dosage: 10 MG
     Dates: start: 20030101

REACTIONS (2)
  - BLOOD PRESSURE DECREASED [None]
  - SYNCOPE [None]
